FAERS Safety Report 5202813-5 (Version None)
Quarter: 2006Q4

REPORT INFORMATION
  Report Type: 
  Country: None (occurrence: None)
  Receive Date: 20061018
  Receipt Date: 20060721
  Transmission Date: 20070319
  Serious: Yes (Hospitalization)
  Sender: FDA-Public Use
  Company Number: PHEH2006US09381

PATIENT
  Age: 74 Year
  Sex: Female

DRUGS (12)
  1. ZOMETA [Suspect]
     Indication: METASTASES TO BONE
     Dosage: 4MG ONCE
     Dates: start: 20060717, end: 20060717
  2. LANOXIN [Concomitant]
  3. ATACAND [Concomitant]
  4. HYDROCHLOROTHIAZIDE [Concomitant]
  5. NITROFURANTOIN [Concomitant]
  6. ZOLOFT [Concomitant]
  7. LYRICA [Concomitant]
  8. ASPIRIN [Concomitant]
  9. MULTIVIT (VITAMINS NOS) [Concomitant]
  10. CALTRATE (CALCIUM CARBONATE) [Concomitant]
  11. NORCO [Concomitant]
  12. TARCEVA [Concomitant]

REACTIONS (1)
  - PYREXIA [None]
